FAERS Safety Report 4918190-0 (Version None)
Quarter: 2006Q1

REPORT INFORMATION
  Report Type: 
  Country: None (occurrence: None)
  Receive Date: 20060113
  Receipt Date: 20051013
  Transmission Date: 20060701
  Serious: No
  Sender: FDA-Public Use
  Company Number: 2005SP003529

PATIENT
  Age: 61 Year
  Sex: Female
  Weight: 72.5755 kg

DRUGS (5)
  1. LUNESTA [Suspect]
     Indication: FIBROMYALGIA
     Dosage: HS; ORAL
     Route: 048
     Dates: start: 20050101, end: 20050101
  2. PRAVACHOL [Concomitant]
  3. ACCUPRIL [Concomitant]
  4. LEXAPRO [Concomitant]
  5. SEROQUEL [Concomitant]

REACTIONS (3)
  - ABNORMAL DREAMS [None]
  - DYSGEUSIA [None]
  - INSOMNIA [None]
